FAERS Safety Report 4338112-3 (Version None)
Quarter: 2004Q2

REPORT INFORMATION
  Report Type: 
  Country: None (occurrence: None)
  Receive Date: 20040407
  Receipt Date: 20040330
  Transmission Date: 20050107
  Serious: Yes (Other)
  Sender: FDA-Public Use
  Company Number: 2004-03-2030

PATIENT
  Age: 55 Year
  Sex: Female

DRUGS (4)
  1. TEMODAL [Suspect]
     Indication: GLIOMA
     Dosage: 200 MG/M^2 QD ORAL
     Route: 048
     Dates: start: 20040211, end: 20040310
  2. TEMODAL [Suspect]
     Indication: NEOPLASM MALIGNANT
     Dosage: 200 MG/M^2 QD ORAL
     Route: 048
     Dates: start: 20040211, end: 20040310
  3. CARBAMAZEPINE [Concomitant]
  4. FUROSEMIDE [Concomitant]

REACTIONS (1)
  - GENERALISED ERYTHEMA [None]
